FAERS Safety Report 8190120-0 (Version None)
Quarter: 2012Q1

REPORT INFORMATION
  Report Type: 
  Country: None (occurrence: None)
  Receive Date: 20120305
  Receipt Date: 20120228
  Transmission Date: 20120608
  Serious: Yes (Other)
  Sender: FDA-Public Use
  Company Number: DSA_48870_2012

PATIENT
  Sex: Female

DRUGS (7)
  1. ONDANSETRON [Concomitant]
  2. ANTIEMETICS AND ANTINAUSEANTS [Concomitant]
  3. TRAMADOL HCL [Concomitant]
  4. REMERON [Concomitant]
  5. XENAZINE [Suspect]
     Dosage: 12.5 MG TID, (12.5 MG BID), (12.5 MG QD)
     Dates: start: 20110701, end: 20110801
  6. XENAZINE [Suspect]
     Dosage: 12.5 MG TID, (12.5 MG BID), (12.5 MG QD)
     Dates: start: 20111201
  7. XENAZINE [Suspect]
     Dosage: 12.5 MG TID, (12.5 MG BID), (12.5 MG QD)
     Dates: start: 20110101, end: 20110101

REACTIONS (6)
  - DRUG INTOLERANCE [None]
  - INAPPROPRIATE SCHEDULE OF DRUG ADMINISTRATION [None]
  - DRUG INEFFECTIVE [None]
  - ABDOMINAL PAIN UPPER [None]
  - INSOMNIA [None]
  - PRODUCT QUALITY ISSUE [None]
